FAERS Safety Report 20420411 (Version 4)
Quarter: 2022Q2

REPORT INFORMATION
  Report Type: Other
  Country: GB (occurrence: GB)
  Receive Date: 20220203
  Receipt Date: 20220408
  Transmission Date: 20220721
  Serious: Yes (Other)
  Sender: FDA-Public Use
  Company Number: None

PATIENT
  Age: 73 Year
  Sex: Female
  Weight: 48 kg

DRUGS (144)
  1. ALLOPURINOL [Suspect]
     Active Substance: ALLOPURINOL
     Indication: Product used for unknown indication
     Dosage: 300 MILLIGRAM, QD
     Route: 065
  2. ALLOPURINOL [Suspect]
     Active Substance: ALLOPURINOL
     Dosage: 300 MILLIGRAM, QD
     Route: 065
  3. ALLOPURINOL [Suspect]
     Active Substance: ALLOPURINOL
     Dosage: 30 MILLIGRAM, QD
     Route: 065
  4. ALLOPURINOL [Suspect]
     Active Substance: ALLOPURINOL
     Dosage: 300 MILLIGRAM, QD
     Route: 065
  5. ALLOPURINOL [Suspect]
     Active Substance: ALLOPURINOL
     Dosage: 300 MILLIGRAM, QD
     Route: 065
  6. ALLOPURINOL [Suspect]
     Active Substance: ALLOPURINOL
     Dosage: 300 MILLIGRAM
     Route: 065
  7. ALLOPURINOL [Suspect]
     Active Substance: ALLOPURINOL
     Dosage: 30 MILLIGRAM, QD
     Route: 065
  8. ALLOPURINOL [Suspect]
     Active Substance: ALLOPURINOL
     Dosage: 300 MILLIGRAM, QD
     Route: 065
  9. ALLOPURINOL [Suspect]
     Active Substance: ALLOPURINOL
     Dosage: UNK
     Route: 065
  10. ALLOPURINOL [Suspect]
     Active Substance: ALLOPURINOL
     Dosage: 30 MILLIGRAM, QD
     Route: 065
  11. ALLOPURINOL [Suspect]
     Active Substance: ALLOPURINOL
     Dosage: 300 MILLIGRAM, QD
     Route: 065
  12. ALLOPURINOL [Suspect]
     Active Substance: ALLOPURINOL
     Dosage: UNK,TABLET
     Route: 065
  13. ALLOPURINOL [Suspect]
     Active Substance: ALLOPURINOL
     Dosage: 30 MILLIGRAM, QD
     Route: 065
  14. ALLOPURINOL [Suspect]
     Active Substance: ALLOPURINOL
     Dosage: 300 MILLIGRAM, QD
     Route: 065
  15. ALLOPURINOL [Suspect]
     Active Substance: ALLOPURINOL
     Dosage: 300 MILLIGRAM, QD
     Route: 065
  16. DEXAMETHASONE [Suspect]
     Active Substance: DEXAMETHASONE
     Indication: Product used for unknown indication
     Dosage: 20 MILLIGRAM PER DAY, ORAL LIQUID
     Route: 065
  17. DEXAMETHASONE [Suspect]
     Active Substance: DEXAMETHASONE
     Dosage: 20 MILLIGRAM, QD  (ORAL LIQUID)
     Route: 065
  18. DEXAMETHASONE [Suspect]
     Active Substance: DEXAMETHASONE
     Dosage: 20 MILLIGRAM, QD
     Route: 065
  19. DEXAMETHASONE [Suspect]
     Active Substance: DEXAMETHASONE
     Dosage: 100 MILLIGRAM
     Route: 065
  20. DEXAMETHASONE [Suspect]
     Active Substance: DEXAMETHASONE
     Dosage: 20 MILLIGRAM, QD (TABLET)
     Route: 065
  21. PREDNISOLONE [Suspect]
     Active Substance: PREDNISOLONE
     Indication: Plasma cell leukaemia
     Dosage: UNK, CYCLICAL
     Route: 065
  22. PREDNISOLONE [Suspect]
     Active Substance: PREDNISOLONE
     Dosage: 70 MG, QD,VMP REGIMEN, DAY 1 TO 4, CYCLE 2
     Route: 065
  23. PREDNISOLONE [Suspect]
     Active Substance: PREDNISOLONE
     Dosage: 70 MILLIGRAM QD, 1 CYCLE
     Route: 065
  24. PREDNISOLONE [Suspect]
     Active Substance: PREDNISOLONE
     Dosage: 70 MILLIGRAM, QD
     Route: 065
  25. PREDNISOLONE [Suspect]
     Active Substance: PREDNISOLONE
     Dosage: 70 MILLIGRAM PER DAY, ONCE A DAY
     Route: 065
  26. PREDNISOLONE [Suspect]
     Active Substance: PREDNISOLONE
     Dosage: 70 MILLIGRAM, QD, 1CYCLE
     Route: 065
  27. PREDNISOLONE [Suspect]
     Active Substance: PREDNISOLONE
     Dosage: 70 MILLIGRAM
     Route: 065
  28. PREDNISOLONE [Suspect]
     Active Substance: PREDNISOLONE
     Dosage: 70 MILLIGRAM, QD
     Route: 065
  29. METOCLOPRAMIDE [Suspect]
     Active Substance: METOCLOPRAMIDE
     Indication: Product used for unknown indication
     Dosage: 10 MILLIGRAM, PRN, AS NECESSARY
     Route: 065
  30. METOCLOPRAMIDE [Suspect]
     Active Substance: METOCLOPRAMIDE
     Dosage: 10 MILLIGRAM, PRN, AS NECESSARY
     Route: 065
  31. METOCLOPRAMIDE [Suspect]
     Active Substance: METOCLOPRAMIDE
     Dosage: 20 MILLIGRAM, QD
     Route: 065
  32. SODIUM CHLORIDE [Suspect]
     Active Substance: SODIUM CHLORIDE
     Indication: Medication dilution
     Dosage: 1.3 MICROGRAM/SQ. METER, CYCLICAL
     Route: 065
  33. SODIUM CHLORIDE [Suspect]
     Active Substance: SODIUM CHLORIDE
     Dosage: UNK, CYCLICAL VMP REGIMEN
     Route: 041
  34. SODIUM CHLORIDE [Suspect]
     Active Substance: SODIUM CHLORIDE
     Dosage: UNK UNK, CYCLICAL VMP REGIMEN
     Route: 041
  35. SODIUM CHLORIDE [Suspect]
     Active Substance: SODIUM CHLORIDE
     Dosage: UNK, CYCLICAL (1 CYCLE)
     Route: 041
  36. SODIUM CHLORIDE [Suspect]
     Active Substance: SODIUM CHLORIDE
     Dosage: UNK
     Route: 041
  37. SODIUM CHLORIDE [Suspect]
     Active Substance: SODIUM CHLORIDE
     Dosage: UNK, CYCLICAL (1 CYCLE)
     Route: 041
  38. SODIUM CHLORIDE [Suspect]
     Active Substance: SODIUM CHLORIDE
     Dosage: UNK, 1 CYCLE
     Route: 065
  39. SODIUM CHLORIDE [Suspect]
     Active Substance: SODIUM CHLORIDE
     Dosage: UNK
     Route: 041
  40. SODIUM CHLORIDE [Suspect]
     Active Substance: SODIUM CHLORIDE
     Dosage: UNK, CYCLICAL (1 CYCLE)
     Route: 041
  41. SODIUM CHLORIDE [Suspect]
     Active Substance: SODIUM CHLORIDE
     Dosage: UNK
     Route: 065
  42. SODIUM CHLORIDE [Suspect]
     Active Substance: SODIUM CHLORIDE
     Dosage: UNK, CYCLICAL
     Route: 041
  43. SODIUM CHLORIDE [Suspect]
     Active Substance: SODIUM CHLORIDE
     Dosage: UNK
     Route: 065
  44. SODIUM CHLORIDE [Suspect]
     Active Substance: SODIUM CHLORIDE
     Dosage: UNK, CYCLICAL
     Route: 041
  45. SODIUM CHLORIDE [Suspect]
     Active Substance: SODIUM CHLORIDE
     Dosage: UNK, QD
     Route: 065
  46. SODIUM CHLORIDE [Suspect]
     Active Substance: SODIUM CHLORIDE
     Dosage: UNK
     Route: 065
  47. SODIUM CHLORIDE [Suspect]
     Active Substance: SODIUM CHLORIDE
     Dosage: 14 MILLIGRAM, QD
     Route: 065
  48. SODIUM CHLORIDE [Suspect]
     Active Substance: SODIUM CHLORIDE
     Dosage: 14 MILLIGRAM, TID
     Route: 065
  49. SODIUM CHLORIDE [Suspect]
     Active Substance: SODIUM CHLORIDE
     Dosage: 14 MILLIGRAM, QD
     Route: 065
  50. SODIUM CHLORIDE [Suspect]
     Active Substance: SODIUM CHLORIDE
     Dosage: 14 MILLIGRAM , 1 CYCLE
     Route: 065
  51. SODIUM CHLORIDE [Suspect]
     Active Substance: SODIUM CHLORIDE
     Dosage: UNK, 1CYCLE
     Route: 065
  52. SODIUM CHLORIDE [Suspect]
     Active Substance: SODIUM CHLORIDE
     Dosage: UNK
     Route: 041
  53. SODIUM CHLORIDE [Suspect]
     Active Substance: SODIUM CHLORIDE
     Dosage: UNK, 1 CYCLE
     Route: 041
  54. SODIUM CHLORIDE [Suspect]
     Active Substance: SODIUM CHLORIDE
     Dosage: UNK, 1 CYCLE
     Route: 041
  55. SODIUM CHLORIDE [Suspect]
     Active Substance: SODIUM CHLORIDE
     Dosage: UNK
     Route: 065
  56. SODIUM CHLORIDE [Suspect]
     Active Substance: SODIUM CHLORIDE
     Dosage: UNK
     Route: 065
  57. SODIUM CHLORIDE [Suspect]
     Active Substance: SODIUM CHLORIDE
     Dosage: UNK
     Route: 065
  58. SODIUM CHLORIDE [Suspect]
     Active Substance: SODIUM CHLORIDE
     Dosage: UNK
     Route: 065
  59. VELCADE [Suspect]
     Active Substance: BORTEZOMIB
     Indication: Plasma cell leukaemia
     Dosage: 1.3 MG/M2, CYCLICAL
     Route: 058
  60. VELCADE [Suspect]
     Active Substance: BORTEZOMIB
     Dosage: VMP REGIMEN, CYCLE 1 (1) ; CYCLICAL
     Route: 065
  61. VELCADE [Suspect]
     Active Substance: BORTEZOMIB
     Dosage: 1.3 MG/M2, CYCLICAL, VMP REGIMEN, DAY 1 OF CYCLE 2, DOSE ALSO REPORTED AS 2 MG
     Route: 058
  62. VELCADE [Suspect]
     Active Substance: BORTEZOMIB
     Dosage: 1.3 MG/M2, CYCLICAL, VMP REGIMEN, DAY 8 OF CYCLE 2, DOSE ALSO REPORTED AS 2 MG
     Route: 058
  63. VELCADE [Suspect]
     Active Substance: BORTEZOMIB
     Dosage: 1.8 MILLIGRAM
     Route: 058
  64. VELCADE [Suspect]
     Active Substance: BORTEZOMIB
     Dosage: 1.8 MILLIGRAM
     Route: 058
  65. VELCADE [Suspect]
     Active Substance: BORTEZOMIB
     Dosage: 1.3 MILLIGRAM/SQ. METER, CYCLICAL
     Route: 058
  66. VELCADE [Suspect]
     Active Substance: BORTEZOMIB
     Dosage: 1.3 MILLIGRAM/SQ. METER, CYCLICAL, VELCADE
     Route: 058
  67. VELCADE [Suspect]
     Active Substance: BORTEZOMIB
     Dosage: 1.3 MILLIGRAM/SQ. METER, CYCLICAL, VELCADE
     Route: 058
  68. VELCADE [Suspect]
     Active Substance: BORTEZOMIB
     Dosage: 1.8 MILLIGRAM
     Route: 058
  69. VELCADE [Suspect]
     Active Substance: BORTEZOMIB
     Dosage: UNK; LYOPHILIZED POWDER
     Route: 058
  70. VELCADE [Suspect]
     Active Substance: BORTEZOMIB
     Dosage: 1 MILLIGRAM/SQ. METER
     Route: 058
  71. VELCADE [Suspect]
     Active Substance: BORTEZOMIB
     Dosage: 2 MILLIGRAM/SQ. METER, LYOPHILIZED POWDER
     Route: 058
  72. VELCADE [Suspect]
     Active Substance: BORTEZOMIB
     Dosage: 2 MILLIGRAM/SQ. METERLYOPHILIZED POWDER
     Route: 058
  73. VELCADE [Suspect]
     Active Substance: BORTEZOMIB
     Dosage: 2 MILLIGRAM/SQ. METER
     Route: 058
  74. VELCADE [Suspect]
     Active Substance: BORTEZOMIB
     Dosage: 1.3 MG/M2, CYCLICAL, VMP REGIMEN, DAY 8 OF CYCLE 2, DOSE ALSO REPORTED AS 2 MG
     Route: 058
  75. VELCADE [Suspect]
     Active Substance: BORTEZOMIB
     Dosage: 1.3 MG/M2, CYCLICAL, VMP REGIMEN, DAY 8 OF CYCLE 2, DOSE ALSO REPORTED AS 2 MG
     Route: 058
  76. VELCADE [Suspect]
     Active Substance: BORTEZOMIB
     Dosage: 1.3 MG/M2, CYCLICAL, VMP REGIMEN, DAY 1 OF CYCLE 2, DOSE ALSO REPORTED AS 2 MG
     Route: 058
  77. VELCADE [Suspect]
     Active Substance: BORTEZOMIB
     Dosage: 1.8 MILLIGRAM
     Route: 058
  78. VELCADE [Suspect]
     Active Substance: BORTEZOMIB
     Dosage: 1.8 MILLIGRAM
     Route: 058
  79. VELCADE [Suspect]
     Active Substance: BORTEZOMIB
     Dosage: 1.3 MG/M2, CYCLICAL, VMP REGIMEN, DAY 8 OF CYCLE 2, DOSE ALSO REPORTED AS 2 MG
     Route: 058
  80. VELCADE [Suspect]
     Active Substance: BORTEZOMIB
     Dosage: 1.3 MG/M2, CYCLICAL, VMP REGIMEN, DAY 1 OF CYCLE 2, DOSE ALSO REPORTED AS 2 MG,
     Route: 058
  81. VELCADE [Suspect]
     Active Substance: BORTEZOMIB
     Dosage: 1.8 MILLIGRAM
     Route: 058
  82. VELCADE [Suspect]
     Active Substance: BORTEZOMIB
     Dosage: 1.3 MG/M2, CYCLICAL, VMP REGIMEN, DAY 1 OF CYCLE 2, DOSE ALSO REPORTED AS 2 MG,
     Route: 058
  83. VELCADE [Suspect]
     Active Substance: BORTEZOMIB
     Dosage: 1.3 MG/M2, CYCLICAL, VMP REGIMEN, DAY 8 OF CYCLE 2, DOSE ALSO REPORTED AS 2 MG
     Route: 058
  84. VELCADE [Suspect]
     Active Substance: BORTEZOMIB
     Dosage: 1.8 MILLIGRAM
     Route: 058
  85. VELCADE [Suspect]
     Active Substance: BORTEZOMIB
     Dosage: 1.3 MG/M2, CYCLICAL, VMP REGIMEN, DAY 1 OF CYCLE 2, DOSE ALSO REPORTED AS 2 MG,
     Route: 058
  86. VELCADE [Suspect]
     Active Substance: BORTEZOMIB
     Dosage: 1.8 MILLIGRAM
     Route: 058
  87. VELCADE [Suspect]
     Active Substance: BORTEZOMIB
     Dosage: 1.3 MILLIGRAM/SQ. METER, CYCLICAL, VELCADE
     Route: 058
  88. VELCADE [Suspect]
     Active Substance: BORTEZOMIB
     Dosage: 1.3 MG/M2, CYCLICAL, VMP REGIMEN, DAY 8 OF CYCLE 2, DOSE
     Route: 058
  89. VELCADE [Suspect]
     Active Substance: BORTEZOMIB
     Dosage: 1.3 MG/M2, CYCLICAL, VMP REGIMEN, DAY 1 OF CYCLE 2, DOSE ALSO REPORTED AS 2 MG,
     Route: 058
  90. VELCADE [Suspect]
     Active Substance: BORTEZOMIB
     Dosage: 1.3 MG/M2, CYCLICAL, VMP REGIMEN, DAY 1 OF CYCLE 2, DOSE ALSO REPORTED AS 2 MG,
     Route: 058
  91. VELCADE [Suspect]
     Active Substance: BORTEZOMIB
     Dosage: 1.3 MILLIGRAM/SQ. METER, CYCLICAL
     Route: 058
  92. VELCADE [Suspect]
     Active Substance: BORTEZOMIB
     Dosage: 1.8 MILLIGRAM
     Route: 058
  93. VELCADE [Suspect]
     Active Substance: BORTEZOMIB
     Dosage: 2.6 MILLIGRAM
     Route: 065
  94. VELCADE [Suspect]
     Active Substance: BORTEZOMIB
     Dosage: 1.3 MG/M2, 1 CYCLE
     Route: 058
  95. VELCADE [Suspect]
     Active Substance: BORTEZOMIB
     Dosage: 1.3 MG/M2, 1 CYCLE
     Route: 058
  96. VELCADE [Suspect]
     Active Substance: BORTEZOMIB
     Dosage: 1.3 MG/M2, 1 CYCLEI
     Route: 058
  97. VELCADE [Suspect]
     Active Substance: BORTEZOMIB
     Dosage: 2 MILLIGRAM/SQ. METER, LYOPHILIZED POWDER, STARTED ON 10 NOV 2017
     Route: 058
  98. MELPHALAN [Suspect]
     Active Substance: MELPHALAN
     Indication: Plasma cell leukaemia
     Dosage: 14 MG, QD, VMP REGIMEN, DAY 1 TO 4, CYCLE 2
     Route: 065
  99. MELPHALAN [Suspect]
     Active Substance: MELPHALAN
     Dosage: UNK, CYCLICAL CYCLE 1, VMP REGIMEN (1) ; CYCLICAL
     Route: 065
  100. MELPHALAN [Suspect]
     Active Substance: MELPHALAN
     Dosage: 14 MILLIGRAM  QD
     Route: 065
  101. MELPHALAN [Suspect]
     Active Substance: MELPHALAN
     Dosage: 14 MILLIGRAM, QD
     Route: 065
  102. MELPHALAN [Suspect]
     Active Substance: MELPHALAN
     Dosage: UNK
     Route: 065
  103. MELPHALAN [Suspect]
     Active Substance: MELPHALAN
     Dosage: UNK
     Route: 065
  104. MELPHALAN [Suspect]
     Active Substance: MELPHALAN
     Dosage: 14 MG, QD, VMP REGIMEN, DAY 1 TO 4, CYCLE 2
     Route: 065
  105. MELPHALAN [Suspect]
     Active Substance: MELPHALAN
     Dosage: UNK, QD
     Route: 065
  106. MELPHALAN [Suspect]
     Active Substance: MELPHALAN
     Dosage: UNK
     Route: 065
  107. MELPHALAN [Suspect]
     Active Substance: MELPHALAN
     Dosage: 14 MILLIGRAM, QD
     Route: 065
  108. MELPHALAN [Suspect]
     Active Substance: MELPHALAN
     Dosage: UNK
     Route: 065
  109. MELPHALAN [Suspect]
     Active Substance: MELPHALAN
     Dosage: UNK
     Route: 065
  110. MELPHALAN [Suspect]
     Active Substance: MELPHALAN
     Dosage: UNK, CYCLICAL CYCLE 1, VMP REGIMEN (1) ; CYCLICAL
     Route: 065
  111. MELPHALAN [Suspect]
     Active Substance: MELPHALAN
     Dosage: 14 MILLIGRAM  QD
     Route: 065
  112. MELPHALAN [Suspect]
     Active Substance: MELPHALAN
     Dosage: 14 MILLIGRAM  QD
     Route: 065
  113. FENTANYL [Suspect]
     Active Substance: FENTANYL
     Indication: Product used for unknown indication
     Dosage: 12 MILLIGRAM, EVERY HOUR
     Route: 062
  114. FENTANYL [Suspect]
     Active Substance: FENTANYL
     Dosage: 12 MILLIGRAM
     Route: 062
  115. FENTANYL [Suspect]
     Active Substance: FENTANYL
     Dosage: 12 MICROGRAM
     Route: 055
  116. FENTANYL [Suspect]
     Active Substance: FENTANYL
     Dosage: 12 MICROGRAM
     Route: 065
  117. FENTANYL [Suspect]
     Active Substance: FENTANYL
     Dosage: UNK, IN 1 HOUR
     Route: 065
  118. FENTANYL [Suspect]
     Active Substance: FENTANYL
     Dosage: 1 DOSAGE FORM (1 DOSAGE FORM, QH/
     Route: 065
  119. SERTRALINE [Suspect]
     Active Substance: SERTRALINE HYDROCHLORIDE
     Indication: Product used for unknown indication
     Dosage: 50 MG, EVERY MORNING, ONCE A DAY
     Route: 065
  120. SERTRALINE [Suspect]
     Active Substance: SERTRALINE HYDROCHLORIDE
     Dosage: UNK, INJECTION
     Route: 042
  121. SERTRALINE [Suspect]
     Active Substance: SERTRALINE HYDROCHLORIDE
     Dosage: 50 MILLIGRAM, QD
     Route: 065
  122. SERTRALINE [Suspect]
     Active Substance: SERTRALINE HYDROCHLORIDE
     Dosage: 50 MILLIGRAM, QD
     Route: 065
  123. OMEPRAZOLE [Suspect]
     Active Substance: OMEPRAZOLE
     Indication: Product used for unknown indication
     Dosage: 20 MG, EVERY MORNING , ONCE A DAY
     Route: 048
  124. OMEPRAZOLE [Suspect]
     Active Substance: OMEPRAZOLE
     Dosage: 20 MG, EVERY MORNING , ONCE A DAY
     Route: 065
  125. OMEPRAZOLE [Suspect]
     Active Substance: OMEPRAZOLE
     Dosage: 10 MILLIGRAM, PRN
     Route: 065
  126. OMEPRAZOLE [Suspect]
     Active Substance: OMEPRAZOLE
     Dosage: 2 MILLIGRAM
     Route: 065
  127. OMEPRAZOLE [Suspect]
     Active Substance: OMEPRAZOLE
     Dosage: 10 MILLIGRAM, QD
     Route: 065
  128. BENDROFLUMETHIAZIDE [Suspect]
     Active Substance: BENDROFLUMETHIAZIDE
     Indication: Product used for unknown indication
     Dosage: 2.5 MG, EVERY MORNING, , ONCE A DAY
     Route: 065
  129. BENDROFLUMETHIAZIDE [Suspect]
     Active Substance: BENDROFLUMETHIAZIDE
     Dosage: 2.5 MILLIGRAM, QD
     Route: 065
  130. BENDROFLUMETHIAZIDE [Suspect]
     Active Substance: BENDROFLUMETHIAZIDE
     Dosage: 2 MILLIGRAM, QD, ONCE A DAY
     Route: 065
  131. BENDROFLUMETHIAZIDE [Suspect]
     Active Substance: BENDROFLUMETHIAZIDE
     Dosage: 10 MILLIGRAM PER DAY
     Route: 065
  132. BENDROFLUMETHIAZIDE [Suspect]
     Active Substance: BENDROFLUMETHIAZIDE
     Dosage: 3 MILLIGRAM, QD
     Route: 065
  133. BENDROFLUMETHIAZIDE [Suspect]
     Active Substance: BENDROFLUMETHIAZIDE
     Dosage: UNK (1.8 MG/M2 Q_CYCLE / 1.3 MG/M2 )
     Route: 065
  134. BENDROFLUMETHIAZIDE [Suspect]
     Active Substance: BENDROFLUMETHIAZIDE
     Dosage: 2 MILLIGRAM, QD
     Route: 065
  135. BENDROFLUMETHIAZIDE [Suspect]
     Active Substance: BENDROFLUMETHIAZIDE
     Dosage: 2 MILLIGRAM, QD
     Route: 065
  136. BENDROFLUMETHIAZIDE [Suspect]
     Active Substance: BENDROFLUMETHIAZIDE
     Dosage: 2 MILLIGRAM, QD
     Route: 065
  137. BENDROFLUMETHIAZIDE [Suspect]
     Active Substance: BENDROFLUMETHIAZIDE
     Dosage: 2 MILLIGRAM, QD, 5 DAYS
     Route: 065
  138. BENDROFLUMETHIAZIDE [Suspect]
     Active Substance: BENDROFLUMETHIAZIDE
     Dosage: 3 MILLIGRAM, QD
     Route: 065
  139. BENDROFLUMETHIAZIDE [Suspect]
     Active Substance: BENDROFLUMETHIAZIDE
     Dosage: 2.5 MILLIGRAM, QD, 5 DAYS
     Route: 065
  140. BENDROFLUMETHIAZIDE [Suspect]
     Active Substance: BENDROFLUMETHIAZIDE
     Dosage: UNK
  141. BENDROFLUMETHIAZIDE [Suspect]
     Active Substance: BENDROFLUMETHIAZIDE
     Dosage: 2.5 MILLIGRAM, QD
     Route: 065
  142. RAMIPRIL [Suspect]
     Active Substance: RAMIPRIL
     Indication: Product used for unknown indication
     Dosage: 10 MG, EVERY MORNING, ONCE A DAY
     Route: 048
  143. RAMIPRIL [Suspect]
     Active Substance: RAMIPRIL
     Dosage: 10 MG, EVERY MORNING, ONCE A DAY
     Route: 065
  144. RAMIPRIL [Suspect]
     Active Substance: RAMIPRIL
     Dosage: 10 MG, QD ONCE A DAY UNSPESIFIED DOSAGE FORM EVERY MORNING
     Route: 065

REACTIONS (25)
  - Agitation [Not Recovered/Not Resolved]
  - Agitation [Recovered/Resolved]
  - Agitation [Recovered/Resolved]
  - Paranoia [Not Recovered/Not Resolved]
  - Paranoia [Recovered/Resolved]
  - Paranoia [Recovered/Resolved]
  - Confusional state [Not Recovered/Not Resolved]
  - Confusional state [Recovered/Resolved]
  - Confusional state [Recovered/Resolved]
  - Emotional distress [Not Recovered/Not Resolved]
  - Emotional distress [Not Recovered/Not Resolved]
  - Emotional distress [Unknown]
  - Abnormal behaviour [Recovered/Resolved]
  - Abnormal behaviour [Not Recovered/Not Resolved]
  - Abnormal behaviour [Not Recovered/Not Resolved]
  - Abnormal behaviour [Recovered/Resolved]
  - Disturbance in social behaviour [Recovered/Resolved]
  - Disturbance in social behaviour [Recovered/Resolved]
  - Disorientation [Recovered/Resolved]
  - Hallucination [Recovered/Resolved]
  - Chest discomfort [Not Recovered/Not Resolved]
  - Drug abuse [Unknown]
  - Medication error [Unknown]
  - Incorrect route of product administration [Unknown]
  - Intentional product misuse [Unknown]

NARRATIVE: CASE EVENT DATE: 20171107
